FAERS Safety Report 5195505-2 (Version None)
Quarter: 2006Q4

REPORT INFORMATION
  Report Type: 
  Country: None (occurrence: None)
  Receive Date: 20061222
  Receipt Date: 20061222
  Transmission Date: 20070319
  Serious: Yes (Life-Threatening)
  Sender: FDA-Public Use
  Company Number: None

PATIENT
  Age: 37 Year
  Sex: Male

DRUGS (3)
  1. CEFDITOREN PIVOXIL 300 MG [Suspect]
     Indication: OTITIS MEDIA
     Dosage: 300MG/DAY  ORAL
     Route: 048
     Dates: start: 20060818, end: 20060821
  2. CALONAL (ACETAMINOPHEN) [Concomitant]
  3. HISPORAN (MEQUITAZINE) [Concomitant]

REACTIONS (2)
  - ANAPHYLACTOID REACTION [None]
  - ERYTHEMA MULTIFORME [None]
